FAERS Safety Report 20144371 (Version 1)
Quarter: 2021Q4

REPORT INFORMATION
  Report Type: Spontaneous
  Country: US (occurrence: None)
  Receive Date: 20211202
  Receipt Date: 20211202
  Transmission Date: 20220303
  Serious: No
  Sender: FDA-Public Use
  Company Number: None

PATIENT

DRUGS (3)
  1. FLUBLOK [Suspect]
     Active Substance: INFLUENZA A VIRUS A/CALIFORNIA/7/2009 (H1N1) RECOMBINANT HEMAGGLUTININ ANTIGEN\INFLUENZA A VIRUS A/V
     Route: 030
  2. SODIUM ACETATE [Suspect]
     Active Substance: SODIUM ACETATE
     Dosage: OTHER STRENGTH : 40/20 MEQ/ML;?FREQUENCY : ONCE;?
     Route: 042
  3. BACTERIOSTATIC WATER [Suspect]
     Active Substance: WATER

REACTIONS (3)
  - Product label confusion [None]
  - Product name confusion [None]
  - Product packaging confusion [None]
